FAERS Safety Report 4909003-1 (Version None)
Quarter: 2006Q1

REPORT INFORMATION
  Report Type: 
  Country: None (occurrence: None)
  Receive Date: 20060213
  Receipt Date: 20060201
  Transmission Date: 20060701
  Serious: Yes (Hospitalization)
  Sender: FDA-Public Use
  Company Number: CA-BOEHRINGER INGELHEIM PHARMACEUTICALS, INC.-2006-CN-00081CN

PATIENT
  Sex: Male

DRUGS (2)
  1. MICARDIS [Suspect]
  2. ASPIRIN [Concomitant]

REACTIONS (1)
  - GASTRIC HAEMORRHAGE [None]
